FAERS Safety Report 8070213-9 (Version None)
Quarter: 2012Q1

REPORT INFORMATION
  Report Type: 
  Country: None (occurrence: None)
  Receive Date: 20120125
  Receipt Date: 20111228
  Transmission Date: 20120608
  Serious: Yes (Death, Hospitalization)
  Sender: FDA-Public Use
  Company Number: TR-ACTELION-A-CH2011-59036

PATIENT
  Sex: Female

DRUGS (1)
  1. TRACLEER [Suspect]
     Indication: PULMONARY ARTERIAL HYPERTENSION
     Dosage: 62.5 MG, BID
     Route: 048
     Dates: start: 20090212, end: 20111128

REACTIONS (4)
  - VENTRICULAR TACHYCARDIA [None]
  - MECHANICAL VENTILATION [None]
  - CHEST PAIN [None]
  - SEPTIC EMBOLUS [None]
